FAERS Safety Report 9322157 (Version 2)
Quarter: 2013Q3

REPORT INFORMATION
  Report Type: Spontaneous
  Country: DK (occurrence: JP)
  Receive Date: 20130531
  Receipt Date: 20130709
  Transmission Date: 20140515
  Serious: Yes (Hospitalization)
  Sender: FDA-Public Use
  Company Number: JP-FRI-1000045084

PATIENT
  Age: 49 Year
  Sex: Male
  Weight: 80 kg

DRUGS (10)
  1. LEXAPRO [Suspect]
     Indication: DEPRESSION
     Dosage: 10 MG
     Route: 048
     Dates: start: 20130115, end: 20130402
  2. METHISTA [Interacting]
     Dosage: 1500 MG
     Route: 048
     Dates: start: 20130401, end: 20130402
  3. HUSCODE [Interacting]
     Dosage: 6 DF
     Route: 048
     Dates: start: 20130401, end: 20130402
  4. CEFCAPENE PIVOXIL HYDROCHLORIDE HYDRATE [Interacting]
     Dosage: 3 DF
     Route: 048
     Dates: start: 20130401, end: 20130402
  5. PRANLUKAST [Interacting]
     Dosage: 4 DF
     Route: 048
     Dates: start: 20130401, end: 20130402
  6. BESASTAR SR [Concomitant]
     Dosage: 400 MG
     Route: 048
     Dates: end: 20130402
  7. DEPAS [Concomitant]
     Dosage: 3 MG
     Route: 048
     Dates: end: 20130402
  8. MINZAIN [Concomitant]
     Dosage: 0.25 MG
     Route: 048
     Dates: end: 20130402
  9. AMLODIPINE OD [Concomitant]
     Route: 048
  10. CALONAL [Concomitant]
     Route: 048

REACTIONS (2)
  - Serotonin syndrome [Recovered/Resolved]
  - Drug interaction [Recovered/Resolved]
